FAERS Safety Report 21571834 (Version 1)
Quarter: 2022Q4

REPORT INFORMATION
  Report Type: Spontaneous
  Country: US (occurrence: US)
  Receive Date: 20221109
  Receipt Date: 20221109
  Transmission Date: 20230113
  Serious: No
  Sender: FDA-Public Use
  Company Number: US-BAYER-2022A150113

PATIENT
  Age: 78 Year
  Sex: Female

DRUGS (3)
  1. ALEVE [Suspect]
     Active Substance: NAPROXEN SODIUM
     Indication: Pain
     Dosage: 2 DF, BID ;2 AFTER BREAKFAST AND 2 AFTER DINNER
     Route: 048
  2. ADVIL LIQUI-GELS [Concomitant]
     Active Substance: IBUPROFEN
     Indication: Pain
     Route: 048
  3. TYLENOL [Concomitant]
     Active Substance: ACETAMINOPHEN
     Indication: Pain
     Route: 048

REACTIONS (1)
  - Product prescribing issue [Unknown]
